FAERS Safety Report 12822487 (Version 1)
Quarter: 2016Q4

REPORT INFORMATION
  Report Type: Spontaneous
  Country: US (occurrence: US)
  Receive Date: 20161006
  Receipt Date: 20161006
  Transmission Date: 20170207
  Serious: No
  Sender: FDA-Public Use
  Company Number: US-SHIONOGI, INC-2016000601

PATIENT
  Age: 48 Year
  Sex: Female
  Weight: 70.3 kg

DRUGS (9)
  1. PREMARIN [Suspect]
     Active Substance: ESTROGENS, CONJUGATED
     Indication: DYSPAREUNIA
     Dosage: TWICE WEEKLY
     Route: 067
     Dates: start: 2013
  2. OSPHENA [Suspect]
     Active Substance: OSPEMIFENE
     Indication: DYSPAREUNIA
     Dosage: 60 MG, QD
     Route: 048
     Dates: start: 201511, end: 201604
  3. CENTRUM                            /07499601/ [Concomitant]
     Indication: SUPPLEMENTATION THERAPY
     Dosage: UNK, TABLET ONCE A DAY
  4. SYNTHROID [Concomitant]
     Active Substance: LEVOTHYROXINE SODIUM
     Indication: AUTOIMMUNE THYROIDITIS
     Dosage: 175 ?G, QD
     Route: 048
     Dates: start: 2005
  5. LISINOPRIL. [Concomitant]
     Active Substance: LISINOPRIL
     Indication: ALBUMIN URINE PRESENT
     Dosage: 2.5 MG, QD
     Route: 048
     Dates: start: 201603
  6. SYNTHROID [Concomitant]
     Active Substance: LEVOTHYROXINE SODIUM
     Indication: SJOGREN^S SYNDROME
  7. CALCIUM WITH VITAMIN D3            /01483701/ [Concomitant]
     Indication: BLOOD CALCIUM DECREASED
     Dosage: CALCIUM 500 MG WITH VITAMIN D400 MG, 2 PER DAY
     Route: 048
     Dates: start: 2006, end: 2016
  8. LISINOPRIL. [Concomitant]
     Active Substance: LISINOPRIL
     Indication: PROPHYLAXIS
  9. ASPIRIN                            /00002701/ [Concomitant]
     Active Substance: ASPIRIN
     Indication: THROMBOSIS PROPHYLAXIS
     Dosage: 81 MG, QD, ENTERIC COATED
     Route: 048
     Dates: start: 2005

REACTIONS (5)
  - Urinary tract infection [Recovered/Resolved]
  - Blood calcium decreased [Unknown]
  - Microalbuminuria [Not Recovered/Not Resolved]
  - Dyspareunia [Unknown]
  - Labelled drug-drug interaction medication error [Unknown]

NARRATIVE: CASE EVENT DATE: 201602
